FAERS Safety Report 19677824 (Version 1)
Quarter: 2021Q3

REPORT INFORMATION
  Report Type: Spontaneous
  Country: US (occurrence: US)
  Receive Date: 20210809
  Receipt Date: 20210809
  Transmission Date: 20211014
  Serious: No
  Sender: FDA-Public Use
  Company Number: US-GLAXOSMITHKLINE-USCH2021AMR050288

PATIENT
  Sex: Male
  Weight: 71.67 kg

DRUGS (7)
  1. IBUPROFEN. [Suspect]
     Active Substance: IBUPROFEN
     Indication: MIGRAINE
     Dosage: 2400 MG, QD
  2. PFIZER?BIONTECH COVID?19 VACCINE [Suspect]
     Active Substance: TOZINAMERAN
     Indication: CORONAVIRUS INFECTION
     Dosage: UNK
     Dates: start: 20210610, end: 20210701
  3. TYLENOL [Suspect]
     Active Substance: ACETAMINOPHEN
     Indication: HYPOAESTHESIA
  4. TOPAMAX [Suspect]
     Active Substance: TOPIRAMATE
     Indication: PRODUCT USED FOR UNKNOWN INDICATION
     Dosage: 25 MG, QD
  5. TYLENOL [Suspect]
     Active Substance: ACETAMINOPHEN
     Indication: MIGRAINE
     Dosage: 600 TO 1000 MG EVERY 4 HOURS
  6. TOPAMAX [Suspect]
     Active Substance: TOPIRAMATE
     Dosage: 50 MG, QD
  7. IBUPROFEN. [Suspect]
     Active Substance: IBUPROFEN
     Indication: HYPOAESTHESIA

REACTIONS (1)
  - Drug ineffective [Unknown]
